FAERS Safety Report 6660060 (Version 3)
Quarter: 2013Q2

REPORT INFORMATION
  Report Type: Spontaneous
  Country: FR (occurrence: FR)
  Receive Date: 20080609
  Receipt Date: 20130426
  Transmission Date: 20140414
  Serious: Yes (Hospitalization)
  Sender: FDA-Public Use
  Company Number: FR-BRISTOL-MYERS SQUIBB COMPANY-14213474

PATIENT
  Age: 36 Year
  Sex: Female

DRUGS (1)
  1. ORENCIA FOR INJ 250 MG/VIAL [Suspect]
     Indication: RHEUMATOID ARTHRITIS
     Dosage: 22-OCT-2007, 13-NOV-2007 FOR A TOTAL OF 3 INFUSIONS
     Route: 042
     Dates: start: 20071008, end: 20071113

REACTIONS (1)
  - Lung disorder [Recovered/Resolved]
